FAERS Safety Report 24864651 (Version 1)
Quarter: 2025Q1

REPORT INFORMATION
  Report Type: Spontaneous
  Country: JP (occurrence: JP)
  Receive Date: 20250120
  Receipt Date: 20250120
  Transmission Date: 20250409
  Serious: Yes (Life-Threatening, Hospitalization)
  Sender: ACCORD
  Company Number: JP-MLMSERVICE-20250106-PI332839-00049-1

PATIENT
  Age: 44 Year
  Sex: Female

DRUGS (1)
  1. AMITRIPTYLINE [Suspect]
     Active Substance: AMITRIPTYLINE
     Route: 048

REACTIONS (8)
  - Toxicity to various agents [Unknown]
  - Suicide attempt [Unknown]
  - Intentional overdose [Unknown]
  - Loss of consciousness [Recovered/Resolved]
  - Tachycardia [Recovering/Resolving]
  - Electrocardiogram QRS complex prolonged [Recovering/Resolving]
  - Bundle branch block right [Recovering/Resolving]
  - Electrocardiogram QT prolonged [Recovering/Resolving]
